FAERS Safety Report 9029667 (Version 2)
Quarter: 2013Q1

REPORT INFORMATION
  Report Type: Spontaneous
  Country: AU (occurrence: AU)
  Receive Date: 20130125
  Receipt Date: 20130204
  Transmission Date: 20140127
  Serious: Yes (Other)
  Sender: FDA-Public Use
  Company Number: PHHY2010AU69222

PATIENT
  Sex: Female

DRUGS (8)
  1. ACLASTA [Suspect]
     Indication: OSTEOPOROSIS
     Dosage: 5 MG, UNK
     Route: 042
     Dates: start: 201102
  2. ACLASTA [Suspect]
     Dosage: 5 MG, UNK
     Route: 042
     Dates: start: 20120228
  3. ANTIBIOTICS [Concomitant]
     Dosage: UNK UKN, UNK
  4. METHOTREXATE [Concomitant]
     Dosage: 10 MG, WEEKLY
     Route: 048
  5. HYDROXYUREA [Concomitant]
     Dosage: 500 MG, DAILY
     Route: 048
  6. PANADOL OSTEO [Concomitant]
     Dosage: UNK UKN, UNK
  7. MOBIC [Concomitant]
     Dosage: UNK UKN, PRN
  8. NEXUM [Concomitant]
     Dosage: 20 MG, DAILY

REACTIONS (6)
  - Accident [Unknown]
  - Calcinosis [Not Recovered/Not Resolved]
  - Splenomegaly [Not Recovered/Not Resolved]
  - Arthralgia [Not Recovered/Not Resolved]
  - Vomiting [Recovered/Resolved]
  - Malaise [Unknown]
